FAERS Safety Report 5124857-4 (Version None)
Quarter: 2006Q4

REPORT INFORMATION
  Report Type: 
  Country: None (occurrence: None)
  Receive Date: 20061006
  Receipt Date: 20060926
  Transmission Date: 20070319
  Serious: Yes (Hospitalization)
  Sender: FDA-Public Use
  Company Number: 2006109686

PATIENT
  Age: 63 Year
  Sex: Male

DRUGS (3)
  1. FLUCONAZOLE [Suspect]
     Indication: DRUG USE FOR UNKNOWN INDICATION
     Dosage: ORAL
     Route: 048
     Dates: start: 20060522, end: 20060524
  2. CIPROFLOXACIN [Suspect]
     Indication: URINARY TRACT INFECTION
     Dosage: ORAL
     Route: 048
     Dates: start: 20060506, end: 20060528
  3. LOVENOX [Suspect]
     Indication: COLECTOMY
     Dosage: SUBCUTANEOUS
     Route: 058

REACTIONS (3)
  - RENAL FAILURE ACUTE [None]
  - THROMBOCYTOPENIA [None]
  - URINARY TRACT INFECTION [None]
